FAERS Safety Report 15957446 (Version 3)
Quarter: 2019Q1

REPORT INFORMATION
  Report Type: Spontaneous
  Country: US (occurrence: US)
  Receive Date: 20190213
  Receipt Date: 20190305
  Transmission Date: 20190417
  Serious: Yes (Other)
  Sender: FDA-Public Use
  Company Number: US-NAPPMUNDI-USA-2019-0145938

PATIENT
  Age: 46 Year
  Sex: Male

DRUGS (6)
  1. BUTRANS [Suspect]
     Active Substance: BUPRENORPHINE
     Dosage: 10 MCG/HR, WEEKLY
     Route: 062
     Dates: start: 201806
  2. DICLOFENAC POTASSIUM. [Concomitant]
     Active Substance: DICLOFENAC POTASSIUM
     Indication: MIGRAINE
     Dosage: UNK
     Route: 065
  3. BUTRANS [Suspect]
     Active Substance: BUPRENORPHINE
     Dosage: 20 MCG/HR, WEEKLY
     Route: 062
     Dates: start: 201807
  4. TRAMADOL. [Concomitant]
     Active Substance: TRAMADOL
     Indication: BREAKTHROUGH PAIN
     Dosage: UNK
     Route: 065
  5. BUTRANS [Suspect]
     Active Substance: BUPRENORPHINE
     Indication: INTERVERTEBRAL DISC PROTRUSION
     Dosage: 5 MCG/HR, WEEKLY
     Route: 062
     Dates: start: 201806
  6. DICLOFENAC POTASSIUM. [Concomitant]
     Active Substance: DICLOFENAC POTASSIUM
     Indication: PAIN

REACTIONS (19)
  - Drug withdrawal syndrome [Recovered/Resolved]
  - Application site pruritus [Not Recovered/Not Resolved]
  - Application site erythema [Not Recovered/Not Resolved]
  - Thyroidectomy [Unknown]
  - Application site burn [Not Recovered/Not Resolved]
  - Medical device implantation [Unknown]
  - Influenza like illness [Recovered/Resolved]
  - Application site dryness [Not Recovered/Not Resolved]
  - Intervertebral disc operation [Recovered/Resolved]
  - Application site scar [Not Recovered/Not Resolved]
  - Drug effect decreased [Not Recovered/Not Resolved]
  - Spinal fusion surgery [Recovered/Resolved]
  - Pain [Recovered/Resolved]
  - Constipation [Not Recovered/Not Resolved]
  - Unevaluable event [Not Recovered/Not Resolved]
  - Irritability [Recovered/Resolved]
  - Product physical issue [Not Recovered/Not Resolved]
  - Carpal tunnel decompression [Unknown]
  - Agitation [Recovered/Resolved]

NARRATIVE: CASE EVENT DATE: 2018
